FAERS Safety Report 22207731 (Version 1)
Quarter: 2023Q2

REPORT INFORMATION
  Report Type: Spontaneous
  Country: AU (occurrence: AU)
  Receive Date: 20230413
  Receipt Date: 20230413
  Transmission Date: 20230721
  Serious: Yes (Other)
  Sender: FDA-Public Use
  Company Number: AU-MYLANLABS-2023M1039087

PATIENT
  Age: 11 Month
  Sex: Female

DRUGS (8)
  1. RIFAMPIN [Suspect]
     Active Substance: RIFAMPIN
     Indication: Meningitis tuberculous
     Dosage: 30 MILLIGRAM/KILOGRAM, QD
     Route: 065
  2. DEXAMETHASONE [Suspect]
     Active Substance: DEXAMETHASONE
     Indication: Meningitis tuberculous
     Dosage: 0.6 MILLIGRAM/KILOGRAM, QD
     Route: 048
  3. DEXAMETHASONE [Suspect]
     Active Substance: DEXAMETHASONE
     Indication: Paradoxical drug reaction
     Dosage: 0.6 MILLIGRAM/KILOGRAM, QD (DRUG RE-INITIATED)
     Route: 065
  4. ISONIAZID [Suspect]
     Active Substance: ISONIAZID
     Indication: Meningitis tuberculous
     Dosage: 20 MILLIGRAM/KILOGRAM, QD
     Route: 065
  5. MOXIFLOXACIN [Suspect]
     Active Substance: MOXIFLOXACIN
     Indication: Meningitis tuberculous
     Dosage: 10 MILLIGRAM/KILOGRAM, QD
     Route: 065
  6. PYRAZINAMIDE [Suspect]
     Active Substance: PYRAZINAMIDE
     Indication: Meningitis tuberculous
     Dosage: 10 MILLIGRAM/KILOGRAM, QD
     Route: 065
  7. PYRAZINAMIDE [Suspect]
     Active Substance: PYRAZINAMIDE
     Indication: Paradoxical drug reaction
  8. INFLIXIMAB [Concomitant]
     Active Substance: INFLIXIMAB
     Indication: Paradoxical drug reaction
     Dosage: UNK
     Route: 065

REACTIONS (2)
  - Paradoxical drug reaction [Recovering/Resolving]
  - Therapy non-responder [Unknown]
